FAERS Safety Report 23427145 (Version 6)
Quarter: 2024Q1

REPORT INFORMATION
  Report Type: Spontaneous
  Country: US (occurrence: US)
  Receive Date: 20240122
  Receipt Date: 20240229
  Transmission Date: 20240410
  Serious: No
  Sender: FDA-Public Use
  Company Number: US-PFIZER INC-202400001493

PATIENT
  Age: 13 Year
  Sex: Male
  Weight: 50.8 kg

DRUGS (3)
  1. GENOTROPIN [Suspect]
     Active Substance: SOMATROPIN
     Indication: Growth hormone deficiency
     Dosage: 6 DAYS PER WEEK
  2. GENOTROPIN [Suspect]
     Active Substance: SOMATROPIN
     Indication: Pituitary tumour benign
     Dosage: 2.2 MG PER NIGHT
  3. ANASTROZOLE [Concomitant]
     Active Substance: ANASTROZOLE
     Indication: Growth disorder
     Dosage: ONCE A DAY AT BED TIME

REACTIONS (6)
  - Off label use [Unknown]
  - Drug dose omission by device [Unknown]
  - Wrong technique in device usage process [Unknown]
  - Device malfunction [Unknown]
  - Device leakage [Unknown]
  - Device breakage [Unknown]
